FAERS Safety Report 9986392 (Version 1)
Quarter: 2014Q1

REPORT INFORMATION
  Report Type: Report from Study
  Country: US (occurrence: US)
  Receive Date: 20140307
  Receipt Date: 20140307
  Transmission Date: 20141002
  Serious: No
  Sender: FDA-Public Use
  Company Number: US-ABBVIE-13P-163-1087803-00

PATIENT
  Age: 49 Year
  Sex: Female
  Weight: 56.75 kg

DRUGS (8)
  1. HUMIRA [Suspect]
     Indication: RHEUMATOID ARTHRITIS
     Route: 058
     Dates: start: 200701
  2. NAPROXEN [Concomitant]
     Indication: ARTHRALGIA
  3. MS CONTIN [Concomitant]
     Indication: ARTHRALGIA
  4. METHOTREXATE [Concomitant]
     Indication: RHEUMATOID ARTHRITIS
  5. LAMICTAL [Concomitant]
     Indication: BIPOLAR DISORDER
  6. CYMBALTA [Concomitant]
     Indication: ARTHRALGIA
  7. CLONAZEPAM [Concomitant]
     Indication: ARTHRALGIA
  8. ABILIFY [Concomitant]
     Indication: DEPRESSION

REACTIONS (3)
  - Pain in extremity [Not Recovered/Not Resolved]
  - Arthralgia [Not Recovered/Not Resolved]
  - Arthralgia [Not Recovered/Not Resolved]
